FAERS Safety Report 9495749 (Version 5)
Quarter: 2013Q4

REPORT INFORMATION
  Report Type: Spontaneous
  Country: US (occurrence: US)
  Receive Date: 20130903
  Receipt Date: 20131210
  Transmission Date: 20140711
  Serious: Yes (Hospitalization, Other)
  Sender: FDA-Public Use
  Company Number: US-PFIZER INC-2013250860

PATIENT
  Age: 66 Year
  Sex: Male
  Weight: 84.5 kg

DRUGS (28)
  1. TORISEL [Suspect]
     Indication: METASTATIC RENAL CELL CARCINOMA
     Dosage: 1 DF, WEEKLY (1 INFUSION WEEKLY FOR 3 WEEKS)
     Route: 042
     Dates: start: 20130701, end: 20130715
  2. AMBIEN [Concomitant]
     Indication: INSOMNIA
     Dosage: 5 MG, 1X/DAY AT BEDTIME AS NEEDED
  3. ASPIRIN [Concomitant]
     Dosage: 325 MG, 1X/DAY WITH A MEAL
     Route: 048
  4. VITAMIN D3 [Concomitant]
     Dosage: 1000 IU, 1X/DAY
     Route: 048
  5. FOLIC ACID [Concomitant]
     Dosage: 1 MG, 1X/DAY
     Route: 048
  6. PLAQUENIL [Concomitant]
     Indication: RHEUMATOID ARTHRITIS
     Dosage: 400 MG, 1X/DAY (2-200MG TABLETS DAILY IN THE MORNING)
     Route: 048
  7. LANTUS SOLOSTAR [Concomitant]
     Dosage: 20 IU, DAILY (AT BEDTIME)
     Route: 058
  8. HUMALOG KWIKPEN [Concomitant]
     Dosage: 10 UNITS 3X/DAY BEFORE MEALS
     Route: 058
  9. HUMALOG KWIKPEN [Concomitant]
     Dosage: 10 IU, WITH EACH MEAL
  10. RHEUMATREX [Concomitant]
     Indication: RHEUMATOID ARTHRITIS
     Dosage: 20 MG, WEEKLY (8-2.5MG TABLETS ONCE A WEEK)
  11. NORVASC [Concomitant]
     Dosage: 2.5 MG, 1X/DAY
     Route: 048
  12. PRILOSEC [Concomitant]
     Dosage: 20 MG, 1X/DAY BEFORE A MEAL
     Route: 048
  13. VIAGRA [Concomitant]
     Indication: ERECTILE DYSFUNCTION
     Dosage: UNK
     Route: 048
  14. VIAGRA [Concomitant]
     Dosage: 50 MG, AS NEEDED
  15. ZOCOR [Concomitant]
     Dosage: 80 MG, 1X/DAY
     Route: 048
  16. ATIVAN [Concomitant]
     Indication: NAUSEA
     Dosage: 1 MG, EVERY 4 HOURS AS NEEDED
     Route: 048
  17. ZESTRIL [Concomitant]
     Dosage: 30 MG, 1X/DAY (3-10MG TABLETS DAILY)
     Route: 048
  18. GLUCOPHAGE [Concomitant]
     Dosage: 850 MG, 2X/DAY
     Route: 048
  19. SORAFENIB TOSILATE [Concomitant]
     Dosage: 400 MG, 2X/DAY (2-200MG TABLETS TWICE DAILY)
     Route: 048
  20. METHOTREXATE [Concomitant]
     Dosage: 20 MG, WEEKLY
  21. METFORMIN [Concomitant]
     Dosage: UNK
  22. LISINOPRIL [Concomitant]
     Dosage: 30 MG, DAILY
     Route: 048
  23. LORAZEPAM [Concomitant]
     Dosage: UNK
  24. VITAMIN D [Concomitant]
     Dosage: UNK
  25. LEVOFLOXACIN [Concomitant]
     Dosage: UNK
  26. DECADRON [Concomitant]
     Dosage: 4 MG, 2X/DAY
     Route: 048
  27. CALCIUM + VIT D [Concomitant]
     Dosage: UNK, DAILY
     Route: 048
  28. ASA [Concomitant]
     Dosage: 325 MG, DAILY
     Route: 048

REACTIONS (26)
  - Interstitial lung disease [Recovered/Resolved]
  - Pyrexia [Unknown]
  - Diabetes mellitus inadequate control [Recovering/Resolving]
  - Renal failure acute [Recovering/Resolving]
  - Pulmonary oedema [Unknown]
  - Dyspnoea [Unknown]
  - Hypoglycaemia [Unknown]
  - Confusional state [Unknown]
  - Disease progression [Unknown]
  - Metastatic renal cell carcinoma [Unknown]
  - Anaemia [Unknown]
  - Thrombocytopenia [Recovered/Resolved]
  - Hypotension [Unknown]
  - Hyponatraemia [Recovered/Resolved]
  - Cough [Unknown]
  - Fatigue [Unknown]
  - Asthenia [Unknown]
  - Nausea [Unknown]
  - Headache [Unknown]
  - Muscular weakness [Unknown]
  - Paraesthesia [Unknown]
  - Decreased appetite [Unknown]
  - Pleural effusion [Unknown]
  - Fluid overload [Unknown]
  - Hilar lymphadenopathy [Unknown]
  - Diverticulum intestinal [Unknown]
